FAERS Safety Report 8801773 (Version 1)
Quarter: 2012Q4

REPORT INFORMATION
  Report Type: 
  Country: DE (occurrence: DE)
  Receive Date: 20120921
  Receipt Date: 20120921
  Transmission Date: 20130627
  Serious: Yes (Other)
  Sender: FDA-Public Use
  Company Number: DE-BAYER-2012-098695

PATIENT
  Sex: Female

DRUGS (1)
  1. BETAFERON [Suspect]

REACTIONS (1)
  - Cardiac failure [None]
